FAERS Safety Report 11703255 (Version 2)
Quarter: 2015Q4

REPORT INFORMATION
  Report Type: Spontaneous
  Country: US (occurrence: US)
  Receive Date: 20151105
  Receipt Date: 20151117
  Transmission Date: 20160304
  Serious: No
  Sender: FDA-Public Use
  Company Number: US-GLAXOSMITHKLINE-US2015GSK157332

PATIENT
  Sex: Female

DRUGS (3)
  1. ADVAIR DISKUS [Suspect]
     Active Substance: FLUTICASONE PROPIONATE\SALMETEROL XINAFOATE
     Dosage: UNK (100/50 MCG)
  2. BREO ELLIPTA [Concomitant]
     Active Substance: FLUTICASONE FUROATE\VILANTEROL TRIFENATATE
     Indication: BRONCHITIS
     Dosage: UNK
  3. ADVAIR DISKUS [Suspect]
     Active Substance: FLUTICASONE PROPIONATE\SALMETEROL XINAFOATE
     Indication: BRONCHITIS
     Dosage: UNK (250/50 MCG)

REACTIONS (22)
  - Urticaria [Recovered/Resolved]
  - Condition aggravated [Recovering/Resolving]
  - Hypersensitivity [Recovering/Resolving]
  - Poor quality sleep [Recovering/Resolving]
  - Stomatitis [Recovering/Resolving]
  - Eye pruritus [Recovering/Resolving]
  - Fluid retention [Recovering/Resolving]
  - Productive cough [Recovering/Resolving]
  - Lip pruritus [Recovered/Resolved]
  - Drug hypersensitivity [Recovering/Resolving]
  - Oral mucosal eruption [Recovering/Resolving]
  - Eye swelling [Recovering/Resolving]
  - Abdominal distension [Recovering/Resolving]
  - Ill-defined disorder [Recovering/Resolving]
  - Malaise [Recovering/Resolving]
  - Gastrointestinal disorder [Recovering/Resolving]
  - Drug intolerance [Recovering/Resolving]
  - Eye irritation [Recovering/Resolving]
  - Adverse drug reaction [Recovering/Resolving]
  - Laryngitis [Recovered/Resolved]
  - Weight increased [Recovering/Resolving]
  - Medication error [Unknown]
